FAERS Safety Report 9977603 (Version 2)
Quarter: 2014Q1

REPORT INFORMATION
  Report Type: Report from Study
  Country: US (occurrence: US)
  Receive Date: 20140306
  Receipt Date: 20140306
  Transmission Date: 20141002
  Serious: No
  Sender: FDA-Public Use
  Company Number: US-ABBVIE-13P-163-1138460-00

PATIENT
  Age: 58 Year
  Sex: Female
  Weight: 77.18 kg

DRUGS (9)
  1. HUMIRA [Suspect]
     Indication: PSORIATIC ARTHROPATHY
     Route: 058
  2. HUMIRA [Suspect]
     Route: 058
     Dates: start: 201307
  3. FOLIC ACID [Concomitant]
     Indication: VITAMIN SUPPLEMENTATION
  4. CALCIUM +D [Concomitant]
     Indication: MINERAL SUPPLEMENTATION
  5. MULTIVITAMIN [Concomitant]
     Indication: SUPPLEMENTATION THERAPY
  6. FISH OIL [Concomitant]
     Indication: DRUG INEFFECTIVE
  7. METHOTREXATE [Concomitant]
     Indication: PSORIATIC ARTHROPATHY
  8. WELLBUTRIN [Concomitant]
     Indication: DEPRESSION
  9. WELLBUTRIN [Concomitant]
     Indication: ANXIETY

REACTIONS (4)
  - Drug ineffective [Not Recovered/Not Resolved]
  - Injection site pruritus [Not Recovered/Not Resolved]
  - Injection site erythema [Not Recovered/Not Resolved]
  - Drug effect delayed [Recovered/Resolved]
